FAERS Safety Report 7610664-7 (Version None)
Quarter: 2011Q3

REPORT INFORMATION
  Report Type: 
  Country: None (occurrence: None)
  Receive Date: 20110715
  Receipt Date: 20110627
  Transmission Date: 20111222
  Serious: Yes (Hospitalization, Other)
  Sender: FDA-Public Use
  Company Number: US-BAYER-201026893NA

PATIENT
  Age: 43 Year
  Sex: Female
  Weight: 82.993 kg

DRUGS (11)
  1. YASMIN [Suspect]
     Indication: PREMENSTRUAL SYNDROME
     Dosage: UNK UNK, QD
     Route: 048
     Dates: start: 20051001, end: 20090101
  2. MULTI-VITAMIN [Concomitant]
     Dosage: UNK UNK, QD
  3. VITAMIN E [Concomitant]
     Dosage: 1000 MG, QD
  4. TESSALON [Concomitant]
     Dosage: 100 MG, TID
  5. PERCOCET [Concomitant]
     Indication: BREAKTHROUGH PAIN
  6. ANTIBIOTICS [Concomitant]
     Indication: SINUSITIS
  7. VITAMIN D [Concomitant]
     Dosage: 1000 MG, QD
  8. CHLORPHENIRAMINE MALEATE [Concomitant]
     Dosage: UNK UNK, BID
  9. MOTRIN [Concomitant]
     Dosage: UNK UNK, PRN
  10. SYNTHROID [Concomitant]
     Indication: HYPOTHYROIDISM
  11. TESSALON [Concomitant]

REACTIONS (3)
  - GALLBLADDER DISORDER [None]
  - ANXIETY [None]
  - PULMONARY EMBOLISM [None]
